FAERS Safety Report 8898087 (Version 1)
Quarter: 2012Q4

REPORT INFORMATION
  Report Type: 
  Country: US (occurrence: US)
  Receive Date: 20121108
  Receipt Date: 20121108
  Transmission Date: 20130627
  Serious: No
  Sender: FDA-Public Use
  Company Number: US-AMGEN-USASP2012024447

PATIENT
  Age: 54 Year
  Sex: Female

DRUGS (9)
  1. ENBREL [Suspect]
     Indication: RHEUMATOID ARTHRITIS
     Dosage: 50 mg, qwk
     Route: 058
  2. SYNTHROID [Concomitant]
     Dosage: 100 mug, UNK
     Route: 048
  3. LISINOPRIL [Concomitant]
     Dosage: 10 mg, UNK
     Route: 048
  4. LODINE [Concomitant]
     Dosage: 200 mg, UNK
     Route: 048
  5. CALCIUM [Concomitant]
     Dosage: UNK
     Route: 048
  6. CLARITIN-D [Concomitant]
     Route: 048
  7. VITAMIN D /00107901/ [Concomitant]
     Dosage: 50000 IU, UNK
     Route: 048
  8. FOLIC ACID [Concomitant]
     Route: 048
  9. HUMIRA [Concomitant]

REACTIONS (1)
  - Drug ineffective [Unknown]
